FAERS Safety Report 14900585 (Version 1)
Quarter: 2018Q2

REPORT INFORMATION
  Report Type: Spontaneous
  Country: US (occurrence: US)
  Receive Date: 20180429
  Receipt Date: 20180429
  Transmission Date: 20180711
  Serious: Yes (Hospitalization)
  Sender: FDA-Public Use
  Company Number: None

PATIENT

DRUGS (1)
  1. AMPICILLIN [Suspect]
     Active Substance: AMPICILLIN

REACTIONS (3)
  - Rash [None]
  - Swelling [None]
  - Pruritus [None]
